FAERS Safety Report 4944121-3 (Version None)
Quarter: 2006Q1

REPORT INFORMATION
  Report Type: 
  Country: None (occurrence: None)
  Receive Date: 20060309
  Receipt Date: 20060223
  Transmission Date: 20060701
  Serious: Yes (Death)
  Sender: FDA-Public Use
  Company Number: 2006-US-00756

PATIENT
  Age: 81 Year
  Sex: Male

DRUGS (1)
  1. CLOZAPINE [Suspect]
     Indication: PARKINSON'S DISEASE
     Dosage: QD, ORAL
     Route: 048
     Dates: start: 20040301, end: 20051201

REACTIONS (2)
  - PNEUMONIA [None]
  - RESPIRATORY FAILURE [None]
